FAERS Safety Report 6533538-1 (Version None)
Quarter: 2010Q1

REPORT INFORMATION
  Report Type: 
  Country: None (occurrence: None)
  Receive Date: 20100108
  Receipt Date: 20100108
  Transmission Date: 20100710
  Serious: Yes (Other)
  Sender: FDA-Public Use
  Company Number: None

PATIENT
  Age: 43 Year
  Sex: Female
  Weight: 74.8435 kg

DRUGS (2)
  1. TOPIRAMATE [Suspect]
     Indication: CLUSTER HEADACHE
     Dosage: INITIALLY 100 MG 2 DAILY PO ABOUT 8 TO 10 DAYS
     Route: 048
  2. TOPIRAMATE [Suspect]
     Indication: MIGRAINE
     Dosage: INITIALLY 100 MG 2 DAILY PO ABOUT 8 TO 10 DAYS
     Route: 048

REACTIONS (5)
  - CRYING [None]
  - DRUG EFFECT DECREASED [None]
  - HEADACHE [None]
  - INSOMNIA [None]
  - PRODUCT SUBSTITUTION ISSUE [None]
